FAERS Safety Report 4329774-5 (Version None)
Quarter: 2004Q2

REPORT INFORMATION
  Report Type: 
  Country: None (occurrence: None)
  Receive Date: 20040401
  Receipt Date: 20040324
  Transmission Date: 20050107
  Serious: Yes (Hospitalization)
  Sender: FDA-Public Use
  Company Number: US-BRISTOL-MYERS SQUIBB COMPANY-12540514

PATIENT
  Age: 73 Year
  Sex: Female

DRUGS (6)
  1. CISPLATIN [Suspect]
     Indication: ADENOCARCINOMA PANCREAS
     Route: 042
     Dates: start: 20031202, end: 20031202
  2. GEMCITABINE [Suspect]
     Indication: ADENOCARCINOMA PANCREAS
     Route: 042
     Dates: start: 20040110, end: 20040110
  3. RADIATION THERAPY [Suspect]
     Indication: ADENOCARCINOMA PANCREAS
     Dates: start: 20040113, end: 20040113
  4. DIGOXIN [Concomitant]
     Route: 048
  5. NEXIUM [Concomitant]
  6. CELEBREX [Concomitant]

REACTIONS (7)
  - ADHESION [None]
  - HEPATIC CONGESTION [None]
  - HEPATIC FIBROSIS [None]
  - HEPATIC HAEMORRHAGE [None]
  - HEPATIC INFARCTION [None]
  - HEPATIC NECROSIS [None]
  - INFLAMMATION [None]
